FAERS Safety Report 13462447 (Version 1)
Quarter: 2017Q2

REPORT INFORMATION
  Report Type: Spontaneous
  Country: GB (occurrence: GB)
  Receive Date: 20170420
  Receipt Date: 20170420
  Transmission Date: 20170830
  Serious: Yes (Other)
  Sender: FDA-Public Use
  Company Number: GB-PFIZER INC-2017167612

PATIENT
  Age: 15 Year
  Sex: Female

DRUGS (6)
  1. COTRIMOXAZOLE [Concomitant]
     Active Substance: SULFAMETHOXAZOLE\TRIMETHOPRIM
  2. CYCLIZINE [Concomitant]
     Active Substance: CYCLIZINE
  3. TRANEXAMIC ACID. [Suspect]
     Active Substance: TRANEXAMIC ACID
     Indication: MENORRHAGIA
     Dosage: 1 GRAM THREE TIMES DAILY
     Route: 048
     Dates: start: 20170331, end: 20170402
  4. AVAMYS [Concomitant]
     Active Substance: FLUTICASONE FUROATE
  5. DESOGESTREL [Concomitant]
     Active Substance: DESOGESTREL
  6. LAXIDO [Concomitant]
     Active Substance: POLYETHYLENE GLYCOL 3350\POTASSIUM CHLORIDE\SODIUM BICARBONATE\SODIUM CHLORIDE

REACTIONS (1)
  - Generalised tonic-clonic seizure [Recovered/Resolved]

NARRATIVE: CASE EVENT DATE: 20170402
